FAERS Safety Report 10215582 (Version 7)
Quarter: 2014Q3

REPORT INFORMATION
  Report Type: Report from Study
  Country: US (occurrence: US)
  Receive Date: 20140604
  Receipt Date: 20140922
  Transmission Date: 20150326
  Serious: Yes (Death, Life-Threatening, Hospitalization, Other)
  Sender: FDA-Public Use
  Company Number: US-JNJFOC-20140600520

PATIENT
  Age: 60 Year
  Sex: Male
  Weight: 78.02 kg

DRUGS (1)
  1. USTEKINUMAB [Suspect]
     Active Substance: USTEKINUMAB
     Indication: PSORIASIS
     Route: 058
     Dates: start: 201010

REACTIONS (2)
  - Lung adenocarcinoma metastatic [Fatal]
  - Enterococcal sepsis [Fatal]

NARRATIVE: CASE EVENT DATE: 20140428
